FAERS Safety Report 4850010-5 (Version None)
Quarter: 2005Q4

REPORT INFORMATION
  Report Type: 
  Country: None (occurrence: None)
  Receive Date: 20051102
  Receipt Date: 20050822
  Transmission Date: 20060501
  Serious: No
  Sender: FDA-Public Use
  Company Number: 200511300BWH

PATIENT
  Age: 46 Year
  Sex: Male

DRUGS (10)
  1. LEVITRA [Suspect]
     Indication: ERECTILE DYSFUNCTION
     Dosage: 20 MG, TOTAL DAILY, ORAL
     Route: 048
  2. LEVITRA [Suspect]
     Indication: TESTICULAR DISORDER
     Dosage: 20 MG, TOTAL DAILY, ORAL
     Route: 048
  3. LEVITRA [Suspect]
     Indication: TESTICULAR PAIN
     Dosage: 20 MG, TOTAL DAILY, ORAL
     Route: 048
  4. LITHIUM [Concomitant]
  5. LUVOX [Concomitant]
  6. SEROQUEL [Concomitant]
  7. KLONOPIN [Concomitant]
  8. ADDERALL 10 [Concomitant]
  9. VIAGRA [Concomitant]
  10. CIALIS [Concomitant]

REACTIONS (4)
  - PROMOTION OF PERIPHERAL CIRCULATION [None]
  - TESTICULAR PAIN [None]
  - TESTICULAR RETRACTION [None]
  - THERAPEUTIC RESPONSE UNEXPECTED [None]
